FAERS Safety Report 18326327 (Version 1)
Quarter: 2020Q3

REPORT INFORMATION
  Report Type: Spontaneous
  Country: DE (occurrence: DE)
  Receive Date: 20200929
  Receipt Date: 20200929
  Transmission Date: 20201103
  Serious: Yes (Hospitalization)
  Sender: FDA-Public Use
  Company Number: DE-MYLANLABS-2020M1082186

PATIENT
  Age: 87 Year
  Sex: Female

DRUGS (9)
  1. FERRO SANOL [Concomitant]
     Active Substance: FERROUS GLYCINE SULFATE
     Dosage: 100 MG, 2?0?0?0, KAPSELN
     Route: 048
  2. GABAPENTIN. [Concomitant]
     Active Substance: GABAPENTIN
     Dosage: 300 MG, 0?0?1?0, KAPSELN
     Route: 048
  3. INSULIN [Concomitant]
     Active Substance: INSULIN NOS
     Dosage: 1 IE, 6?0?0?0, AMPULLEN
     Route: 058
  4. TORASEMIDE [Suspect]
     Active Substance: TORSEMIDE
     Indication: PRODUCT USED FOR UNKNOWN INDICATION
     Dosage: 20 MG, 1?0?0?0, TABLETTEN
     Route: 048
  5. ZOPICLON [Concomitant]
     Active Substance: ZOPICLONE
     Dosage: 7.5 MG, 0?0?0?1, TABLETTEN
     Route: 048
  6. XIPAMIDE [Suspect]
     Active Substance: XIPAMIDE
     Indication: PRODUCT USED FOR UNKNOWN INDICATION
     Dosage: 10 MG, 0?1?0?0, TABLETTEN
     Route: 048
  7. PANTOPRAZOL                        /01263201/ [Concomitant]
     Active Substance: PANTOPRAZOLE
     Dosage: 20 MG, 1?0?0?0, TABLETTEN
     Route: 048
  8. BISOPROLOL [Concomitant]
     Active Substance: BISOPROLOL
     Dosage: 2.5 MG, 1?0?0?0, TABLETTEN
     Route: 048
  9. INSULIN GLARGINE [Concomitant]
     Active Substance: INSULIN GLARGINE
     Dosage: 1 IE, 0?0?8?0, AMPULLEN
     Route: 058

REACTIONS (5)
  - Weight increased [Unknown]
  - General physical health deterioration [Unknown]
  - Oedema peripheral [Unknown]
  - Condition aggravated [Unknown]
  - Dyspnoea [Unknown]

NARRATIVE: CASE EVENT DATE: 202004
